FAERS Safety Report 6866518-7 (Version None)
Quarter: 2010Q2

REPORT INFORMATION
  Report Type: 
  Country: None (occurrence: None)
  Receive Date: 20100601
  Receipt Date: 20100318
  Transmission Date: 20101027
  Serious: Yes (Other)
  Sender: FDA-Public Use
  Company Number: 2010035467

PATIENT
  Age: 36 Year
  Sex: Female

DRUGS (11)
  1. SOLU-MEDROL (METHYLPREDNISOLONE SODIUM SUCCINATE) POWDER FOR SOLUTION [Suspect]
     Indication: HYPERSENSITIVITY
     Dosage: 60 MG, INTRAVENOUS
     Route: 042
     Dates: start: 20091201
  2. SEMPREX-D (ACRIVASTINE, PSEUDOEPHEDRINE HYDROCHLORIDE) [Concomitant]
  3. LOESTRIN FE (ETHINYLESTRADIOL, FERROUS FUMARATE, NORETHISTERONE ACETAT [Concomitant]
  4. THYROID TAB [Concomitant]
  5. MAXALT [Concomitant]
  6. CELEXA [Concomitant]
  7. PREVACID [Concomitant]
  8. AMBIEN [Concomitant]
  9. CODEINE SUL TAB [Concomitant]
  10. XANAX [Concomitant]
  11. CYPROHEPTADINE HCL [Concomitant]

REACTIONS (16)
  - ABDOMINAL DISCOMFORT [None]
  - ACNE [None]
  - ANGER [None]
  - ARTHRALGIA [None]
  - DEPRESSION [None]
  - EUPHORIC MOOD [None]
  - FATIGUE [None]
  - HUNGER [None]
  - INSOMNIA [None]
  - MENSTRUATION IRREGULAR [None]
  - MIGRAINE [None]
  - MOOD SWINGS [None]
  - NAUSEA [None]
  - OEDEMA PERIPHERAL [None]
  - PRURITUS [None]
  - WEIGHT INCREASED [None]
